FAERS Safety Report 10214080 (Version 1)
Quarter: 2014Q2

REPORT INFORMATION
  Report Type: Spontaneous
  Country: FR (occurrence: FR)
  Receive Date: 20140603
  Receipt Date: 20140603
  Transmission Date: 20141212
  Serious: Yes (Life-Threatening, Hospitalization)
  Sender: FDA-Public Use
  Company Number: FR-JNJFOC-20140518321

PATIENT
  Age: 75 Year
  Sex: Male

DRUGS (6)
  1. XARELTO [Suspect]
     Indication: ATRIAL FIBRILLATION
     Route: 048
     Dates: end: 20140412
  2. XARELTO [Suspect]
     Indication: CEREBROVASCULAR ACCIDENT PROPHYLAXIS
     Route: 048
     Dates: end: 20140412
  3. DETENSIEL [Concomitant]
     Route: 065
  4. CORDARONE [Concomitant]
     Route: 065
  5. VELMETIA [Concomitant]
     Route: 065
  6. FLUDEX [Concomitant]
     Route: 065

REACTIONS (2)
  - Cerebral haematoma [Recovered/Resolved]
  - Status epilepticus [Recovered/Resolved]
